FAERS Safety Report 4719496-0 (Version None)
Quarter: 2005Q3

REPORT INFORMATION
  Report Type: 
  Country: None (occurrence: None)
  Receive Date: 20050721
  Receipt Date: 20050701
  Transmission Date: 20060218
  Serious: Yes (Other)
  Sender: FDA-Public Use
  Company Number: JP-BRISTOL-MYERS SQUIBB COMPANY-13021944

PATIENT
  Age: 32 Year
  Sex: Male

DRUGS (3)
  1. BLEOMYCIN [Suspect]
     Indication: TESTIS CANCER
     Dates: start: 20040501, end: 20040501
  2. RANDA [Concomitant]
     Indication: TESTIS CANCER
     Dates: start: 20040501, end: 20040501
  3. LASTET [Concomitant]
     Indication: TESTIS CANCER
     Dates: start: 20040501, end: 20040501

REACTIONS (1)
  - PULMONARY ARTERY THROMBOSIS [None]
